FAERS Safety Report 5267191-4 (Version None)
Quarter: 2007Q1

REPORT INFORMATION
  Report Type: 
  Country: None (occurrence: None)
  Receive Date: 20070316
  Receipt Date: 20070314
  Transmission Date: 20070707
  Serious: Yes (Other)
  Sender: FDA-Public Use
  Company Number: FRWYE196311OCT06

PATIENT
  Sex: Female

DRUGS (2)
  1. ETHINYL ESTRADIOL AND LEVONORGESTREL [Suspect]
     Indication: OVARIAN DISORDER
     Route: 048
     Dates: start: 20061010, end: 20061010
  2. NONE [Concomitant]

REACTIONS (3)
  - CONDITION AGGRAVATED [None]
  - HEREDITARY ANGIOEDEMA [None]
  - URTICARIA [None]
